FAERS Safety Report 8630761 (Version 2)
Quarter: 2012Q4

REPORT INFORMATION
  Report Type: 
  Country: FR (occurrence: FR)
  Receive Date: 20120622
  Receipt Date: 20121129
  Transmission Date: 20130627
  Serious: Yes (Hospitalization)
  Sender: FDA-Public Use
  Company Number: FR-GLAXOSMITHKLINE-B0807529A

PATIENT
  Age: 71 Year
  Sex: Male

DRUGS (11)
  1. ZOPHREN [Suspect]
     Indication: PROPHYLAXIS OF NAUSEA AND VOMITING
     Dosage: 8MCG Twice per day
     Route: 048
     Dates: start: 20120322, end: 20120325
  2. SOLUPRED [Suspect]
     Indication: PRODUCT USED FOR UNKNOWN INDICATION
     Dosage: 50MG Twice per day
     Route: 048
     Dates: start: 20120321, end: 20120323
  3. CISPLATIN [Suspect]
     Indication: CHEMOTHERAPY
     Dosage: 143MG Single dose
     Route: 042
     Dates: start: 20120322, end: 20120322
  4. TAXOTERE [Suspect]
     Indication: CHEMOTHERAPY
     Dosage: 144MG Single dose
     Route: 042
     Dates: start: 20120322, end: 20120322
  5. DOMPERIDONE [Suspect]
     Indication: PRODUCT USED FOR UNKNOWN INDICATION
     Dosage: 10MG Twice per day
     Route: 048
     Dates: start: 201202, end: 20120330
  6. EMEND [Suspect]
     Indication: PRODUCT USED FOR UNKNOWN INDICATION
     Dosage: 125MG Per day
     Route: 048
     Dates: start: 20120322, end: 20120325
  7. OXYNORM [Suspect]
     Indication: PRODUCT USED FOR UNKNOWN INDICATION
     Dosage: 5MG Twice per day
     Route: 048
     Dates: start: 20120307, end: 20120322
  8. GRANOCYTE [Suspect]
     Route: 058
     Dates: start: 20120322, end: 20120325
  9. ISOPTINE [Suspect]
     Dosage: 120MG Per day
     Route: 048
     Dates: start: 20120109, end: 20120322
  10. AMIODARONE [Concomitant]
     Dosage: 200MG Per day
     Route: 048
  11. DIFFU-K [Concomitant]
     Route: 048

REACTIONS (3)
  - Pancreatitis necrotising [Recovered/Resolved]
  - Decreased appetite [Recovered/Resolved]
  - Vomiting [Recovered/Resolved]
